FAERS Safety Report 18526438 (Version 3)
Quarter: 2021Q1

REPORT INFORMATION
  Report Type: Spontaneous
  Country: JP (occurrence: JP)
  Receive Date: 20201120
  Receipt Date: 20210216
  Transmission Date: 20210419
  Serious: Yes (Death, Other)
  Sender: FDA-Public Use
  Company Number: JP-PFIZER INC-2020458336

PATIENT
  Age: 94 Year
  Sex: Female

DRUGS (13)
  1. NIFEDIPINE CR ZE [Concomitant]
     Dosage: 60 MG, DAILY
     Route: 048
  2. DOXAZOSIN [Concomitant]
     Active Substance: DOXAZOSIN MESYLATE
     Dosage: 4 MG, DAILY
     Route: 048
  3. ALLOPURINOL. [Concomitant]
     Active Substance: ALLOPURINOL
     Dosage: 100 MG, DAILY
     Route: 048
  4. AMLODIPINE [Concomitant]
     Active Substance: AMLODIPINE BESYLATE
     Dosage: 2.5 MG, DAILY
     Route: 048
  5. GLIMEPIRIDE. [Concomitant]
     Active Substance: GLIMEPIRIDE
     Dosage: 3 MG, DAILY
     Route: 048
  6. REBAMIPIDE [Concomitant]
     Active Substance: REBAMIPIDE
     Dosage: 300 MG, DAILY
     Route: 048
  7. LIPITOR [Suspect]
     Active Substance: ATORVASTATIN CALCIUM
     Indication: DYSLIPIDAEMIA
     Dosage: 20 MG, DAILY
     Route: 048
  8. CANDESARTAN. [Concomitant]
     Active Substance: CANDESARTAN
     Dosage: 8 MG
     Route: 048
  9. ALOGLIPTIN BENZOATE [Concomitant]
     Active Substance: ALOGLIPTIN BENZOATE
     Dosage: 25 MG, DAILY
     Route: 048
  10. SENNOSIDE A [Concomitant]
     Active Substance: SENNOSIDE A
     Dosage: 24 MG, DAILY
     Route: 048
  11. ASPIRIN (E.C.) [Suspect]
     Active Substance: ASPIRIN
     Dosage: 100 MG, DAILY
     Route: 048
  12. AZOSEMIDE [Concomitant]
     Active Substance: AZOSEMIDE
     Dosage: 60 MG, DAILY
     Route: 048
  13. VOGLIBOSE [Concomitant]
     Active Substance: VOGLIBOSE
     Dosage: 0.9 MG
     Route: 048

REACTIONS (17)
  - Myocardial rupture [Fatal]
  - Respiratory failure [Unknown]
  - Pneumonia [Unknown]
  - Anaemia [Unknown]
  - Cystic fibrosis pancreatic [Unknown]
  - Cardiac failure [Unknown]
  - Renal impairment [Unknown]
  - Acute myocardial infarction [Fatal]
  - Myocardial ischaemia [Unknown]
  - Gastric cancer [Unknown]
  - Bile duct stone [Unknown]
  - Lung adenocarcinoma [Unknown]
  - Hyperglycaemia [Unknown]
  - Gastrointestinal haemorrhage [Fatal]
  - Disorientation [Unknown]
  - Myocardial infarction [Fatal]
  - Cardiac tamponade [Fatal]
